FAERS Safety Report 4270588-2 (Version None)
Quarter: 2004Q1

REPORT INFORMATION
  Report Type: 
  Country: None (occurrence: None)
  Receive Date: 20040114
  Receipt Date: 20040114
  Transmission Date: 20041129
  Serious: No
  Sender: FDA-Public Use
  Company Number: None

PATIENT
  Age: 60 Year
  Sex: Female

DRUGS (2)
  1. VANCOMYCIN [Suspect]
     Dosage: IV Q 12
     Route: 042
  2. OTHER IV ANTIBIOTICS [Suspect]
     Dosage: ALSO Q 6 IV
     Route: 042

REACTIONS (3)
  - INFUSION SITE PAIN [None]
  - INJECTION SITE EXTRAVASATION [None]
  - MEDICATION ERROR [None]
